FAERS Safety Report 23891068 (Version 1)
Quarter: 2024Q2

REPORT INFORMATION
  Report Type: Spontaneous
  Country: US (occurrence: US)
  Receive Date: 20240523
  Receipt Date: 20240523
  Transmission Date: 20240716
  Serious: No
  Sender: FDA-Public Use
  Company Number: US-ASTELLAS-2024US008972

PATIENT
  Sex: Female

DRUGS (2)
  1. KEYTRUDA [Suspect]
     Active Substance: PEMBROLIZUMAB
     Indication: Bladder cancer stage IV
  2. ENFORTUMAB VEDOTIN [Suspect]
     Active Substance: ENFORTUMAB VEDOTIN
     Indication: Bladder cancer stage IV
     Dosage: UNK
     Dates: start: 20240305

REACTIONS (8)
  - Rash [Not Recovered/Not Resolved]
  - Oral mucosal eruption [Recovering/Resolving]
  - Insomnia [Not Recovered/Not Resolved]
  - Vision blurred [Unknown]
  - Constipation [Unknown]
  - Urinary tract infection [Unknown]
  - Blister [Unknown]
  - Skin lesion [Unknown]

NARRATIVE: CASE EVENT DATE: 20240301
